FAERS Safety Report 14144260 (Version 2)
Quarter: 2018Q2

REPORT INFORMATION
  Report Type: Report from Study
  Country: DE (occurrence: DE)
  Receive Date: 20171031
  Receipt Date: 20180425
  Transmission Date: 20180711
  Serious: Yes (Death, Hospitalization)
  Sender: FDA-Public Use
  Company Number: DE-ROCHE-1611135

PATIENT
  Age: 54 Year
  Sex: Female
  Weight: 70 kg

DRUGS (6)
  1. CAPECITABINE. [Suspect]
     Active Substance: CAPECITABINE
     Dosage: FROM 11/JUL/2013 TO 25/JUL/2013, 31/JUL/2013 TO 14/AUG/2013
     Route: 048
     Dates: start: 20130711, end: 20130814
  2. BEVACIZUMAB. [Suspect]
     Active Substance: BEVACIZUMAB
     Indication: BREAST CANCER
     Route: 042
     Dates: start: 20130409, end: 20140206
  3. BEVACIZUMAB. [Suspect]
     Active Substance: BEVACIZUMAB
     Route: 042
     Dates: start: 20140206
  4. CAPECITABINE. [Suspect]
     Active Substance: CAPECITABINE
     Dosage: 21/MAY/2013 TO 03/JUN/2013, 11/JUN/2013 TO 25/JUN/2013.
     Route: 048
     Dates: start: 20130521, end: 20130625
  5. CAPECITABINE. [Suspect]
     Active Substance: CAPECITABINE
     Dosage: FROM 12/SEP/2013 TO 26/SEP/2013, 01/OCT/2013 TO 15/OCT/2013, 24/OCT/2013 TO 07/NOV/2013, 14/NOV/2013
     Route: 048
     Dates: start: 20130912, end: 20140218
  6. CAPECITABINE. [Suspect]
     Active Substance: CAPECITABINE
     Indication: BREAST CANCER
     Dosage: FROM D1-D14 OF EACH CYCLE?FROM 09/APR/2013 TO 23/APR/2013, 30/APR/2013 TO 14/MAY/2013.?DAILY
     Route: 048
     Dates: start: 20130409, end: 20130514

REACTIONS (1)
  - General physical health deterioration [Fatal]

NARRATIVE: CASE EVENT DATE: 20150620
